FAERS Safety Report 9924253 (Version 2)
Quarter: 2014Q2

REPORT INFORMATION
  Report Type: Spontaneous
  Country: JP (occurrence: JP)
  Receive Date: 20140226
  Receipt Date: 20140415
  Transmission Date: 20141212
  Serious: Yes (Hospitalization)
  Sender: FDA-Public Use
  Company Number: JP-009507513-1402JPN011493

PATIENT
  Sex: 0

DRUGS (1)
  1. GLACTIV [Suspect]
     Dosage: 25 MG, QD
     Route: 048

REACTIONS (1)
  - Diverticulum intestinal haemorrhagic [Unknown]
